FAERS Safety Report 6064789-0 (Version None)
Quarter: 2009Q1

REPORT INFORMATION
  Report Type: 
  Country: None (occurrence: None)
  Receive Date: 20090203
  Receipt Date: 20090203
  Transmission Date: 20090719
  Serious: Yes (Other)
  Sender: FDA-Public Use
  Company Number: None

PATIENT
  Age: 21 Year
  Sex: Female
  Weight: 52.6173 kg

DRUGS (1)
  1. MONISTAT 7 [Suspect]
     Indication: FUNGAL INFECTION
     Dosage: 1 OVULE 1XPER DAY X7DAYS VAG
     Route: 067
     Dates: start: 20080412, end: 20080413

REACTIONS (6)
  - ABDOMINAL PAIN UPPER [None]
  - CYSTITIS INTERSTITIAL [None]
  - DYSPEPSIA [None]
  - MENTAL DISORDER [None]
  - PYREXIA [None]
  - URTICARIA [None]
